FAERS Safety Report 21157834 (Version 2)
Quarter: 2022Q3

REPORT INFORMATION
  Report Type: Report from Study
  Country: CH (occurrence: CH)
  Receive Date: 20220801
  Receipt Date: 20220912
  Transmission Date: 20221026
  Serious: Yes (Other)
  Sender: FDA-Public Use
  Company Number: CH-NOVARTISPH-NVSC2022CH170671

PATIENT
  Sex: Female

DRUGS (3)
  1. ASCIMINIB [Suspect]
     Active Substance: ASCIMINIB
     Indication: Chronic myeloid leukaemia
     Dosage: 40 MG, BID
     Route: 065
     Dates: start: 20220627, end: 20220630
  2. ASCIMINIB [Suspect]
     Active Substance: ASCIMINIB
     Dosage: HALF DOSE
     Route: 065
     Dates: start: 20220704, end: 20220706
  3. ASCIMINIB [Suspect]
     Active Substance: ASCIMINIB
     Dosage: ONE FOURTH DOSE
     Route: 065
     Dates: start: 20220709, end: 20220712

REACTIONS (10)
  - Electrocardiogram QT prolonged [Recovered/Resolved]
  - Fatigue [Not Recovered/Not Resolved]
  - Nausea [Not Recovered/Not Resolved]
  - Headache [Not Recovered/Not Resolved]
  - Dizziness [Not Recovered/Not Resolved]
  - Vision blurred [Not Recovered/Not Resolved]
  - Myalgia [Not Recovered/Not Resolved]
  - Bone pain [Not Recovered/Not Resolved]
  - Blood potassium decreased [Unknown]
  - Blood calcium decreased [Unknown]

NARRATIVE: CASE EVENT DATE: 20220629
